FAERS Safety Report 10733555 (Version 1)
Quarter: 2015Q1

REPORT INFORMATION
  Report Type: Spontaneous
  Country: US (occurrence: US)
  Receive Date: 20150123
  Receipt Date: 20150123
  Transmission Date: 20150721
  Serious: Yes (Hospitalization, Other)
  Sender: FDA-Public Use
  Company Number: US-ARIAD-2014US004302

PATIENT

DRUGS (1)
  1. ICLUSIG [Suspect]
     Active Substance: PONATINIB
     Indication: CHRONIC MYELOID LEUKAEMIA
     Dosage: 45 MG, QD
     Route: 048
     Dates: start: 20140724, end: 20141230

REACTIONS (4)
  - Pancytopenia [Unknown]
  - Febrile neutropenia [Unknown]
  - Hypertension [Unknown]
  - Angioedema [Unknown]

NARRATIVE: CASE EVENT DATE: 20141212
